FAERS Safety Report 6387838-9 (Version None)
Quarter: 2009Q4

REPORT INFORMATION
  Report Type: 
  Country: None (occurrence: None)
  Receive Date: 20091005
  Receipt Date: 20090925
  Transmission Date: 20100525
  Serious: Yes (Hospitalization, Other)
  Sender: FDA-Public Use
  Company Number: GB-PFIZER INC-2009271872

PATIENT
  Age: 18 Year

DRUGS (2)
  1. METRONIDAZOLE BENZOATE AND METRONIDAZOLE AND METRONIDAZOLE HYDROCHLORI [Suspect]
     Indication: PELVIC INFLAMMATORY DISEASE
     Dosage: 400 MG, 3X/DAY
  2. OFLOXACIN [Suspect]
     Indication: PELVIC INFLAMMATORY DISEASE
     Dosage: 400 MG, 2X/DAY

REACTIONS (1)
  - PSYCHOTIC DISORDER DUE TO A GENERAL MEDICAL CONDITION [None]
